FAERS Safety Report 14483357 (Version 2)
Quarter: 2018Q1

REPORT INFORMATION
  Report Type: Report from Study
  Country: US (occurrence: US)
  Receive Date: 20180204
  Receipt Date: 20180209
  Transmission Date: 20180509
  Serious: Yes (Hospitalization)
  Sender: FDA-Public Use
  Company Number: US-BIOGEN-2018BI00518878

PATIENT
  Sex: Female

DRUGS (1)
  1. AVONEX [Suspect]
     Active Substance: INTERFERON BETA-1A
     Indication: MULTIPLE SCLEROSIS
     Route: 030

REACTIONS (7)
  - Renal impairment [Unknown]
  - Erythema [Unknown]
  - Spinal disorder [Unknown]
  - Hypotension [Recovered/Resolved]
  - Thrombosis [Unknown]
  - Body temperature increased [Unknown]
  - Blister [Unknown]

NARRATIVE: CASE EVENT DATE: 1998
